FAERS Safety Report 16559958 (Version 2)
Quarter: 2020Q3

REPORT INFORMATION
  Report Type: Spontaneous
  Country: US (occurrence: US)
  Receive Date: 20190711
  Receipt Date: 20190904
  Transmission Date: 20201104
  Serious: No
  Sender: FDA-Public Use
  Company Number: US-TEVA-2019-US-1072567

PATIENT
  Age: 80 Year
  Sex: Female

DRUGS (4)
  1. MUPIROCIN OINTMENT [Suspect]
     Active Substance: MUPIROCIN
     Indication: ANTIBIOTIC PROPHYLAXIS
  2. SILVER NITRATE. [Suspect]
     Active Substance: SILVER NITRATE
     Indication: WOUND INFECTION
     Dosage: APPLY TWICE A WEEK
  3. MUPIROCIN OINTMENT [Suspect]
     Active Substance: MUPIROCIN
     Indication: WOUND INFECTION
     Dosage: APPLY TWICE A WEEK
     Route: 061
     Dates: start: 201904
  4. COLLAGENASE SANTYL [Suspect]
     Active Substance: COLLAGENASE CLOSTRIDIUM HISTOLYTICUM
     Indication: WOUND INFECTION
     Dosage: APPLY TWICE A WEEK

REACTIONS (3)
  - Application site pain [Unknown]
  - Impaired healing [Unknown]
  - Hypersomnia [Unknown]
